FAERS Safety Report 19431986 (Version 2)
Quarter: 2021Q3

REPORT INFORMATION
  Report Type: Spontaneous
  Country: CH (occurrence: CH)
  Receive Date: 20210617
  Receipt Date: 20210713
  Transmission Date: 20211014
  Serious: Yes (Hospitalization)
  Sender: FDA-Public Use
  Company Number: CH-BIOGEN-2021BI00996215

PATIENT
  Age: 54 Year
  Sex: Male

DRUGS (1)
  1. TYSABRI [Suspect]
     Active Substance: NATALIZUMAB
     Indication: MULTIPLE SCLEROSIS
     Route: 065
     Dates: start: 201012, end: 20210303

REACTIONS (4)
  - Progressive multifocal leukoencephalopathy [Unknown]
  - Multiple sclerosis relapse [Unknown]
  - Immune reconstitution inflammatory syndrome [Unknown]
  - Acute disseminated encephalomyelitis [Unknown]

NARRATIVE: CASE EVENT DATE: 2021
